FAERS Safety Report 5129653-X (Version None)
Quarter: 2006Q4

REPORT INFORMATION
  Report Type: 
  Country: None (occurrence: None)
  Receive Date: 20061018
  Receipt Date: 20040819
  Transmission Date: 20070319
  Serious: Yes (Hospitalization, Other)
  Sender: FDA-Public Use
  Company Number: US-GLAXOSMITHKLINE-A0523750A

PATIENT
  Age: 23 Year
  Sex: Female

DRUGS (6)
  1. PAXIL [Suspect]
     Dosage: 30TAB SINGLE DOSE
     Route: 048
     Dates: start: 20040106, end: 20040106
  2. PAXIL [Suspect]
     Indication: ANXIETY
     Route: 048
     Dates: start: 20030929, end: 20040106
  3. DOXYCLINE [Concomitant]
  4. BIRTH CONTROL PILLS [Concomitant]
  5. DIPROLENE [Concomitant]
  6. LEXAPRO [Concomitant]
     Indication: ANXIETY
     Dosage: 20MG UNKNOWN
     Route: 065
     Dates: start: 20040101, end: 20040301

REACTIONS (35)
  - ADVERSE EVENT [None]
  - AFFECT LABILITY [None]
  - AGITATION [None]
  - AKATHISIA [None]
  - ANGER [None]
  - ANOREXIA [None]
  - ANXIETY [None]
  - AREFLEXIA [None]
  - ASTHENIA [None]
  - CONFUSIONAL STATE [None]
  - CONSTIPATION [None]
  - CONVULSION [None]
  - CRYING [None]
  - DEPRESSED LEVEL OF CONSCIOUSNESS [None]
  - DEPRESSION [None]
  - DEREALISATION [None]
  - DISABILITY [None]
  - DISORIENTATION [None]
  - DISSOCIATION [None]
  - DRUG WITHDRAWAL SYNDROME [None]
  - EMOTIONAL DISORDER [None]
  - FATIGUE [None]
  - IMPULSIVE BEHAVIOUR [None]
  - INSOMNIA [None]
  - LETHARGY [None]
  - MOOD ALTERED [None]
  - NERVOUSNESS [None]
  - OVERDOSE [None]
  - RESTLESSNESS [None]
  - SEROTONIN SYNDROME [None]
  - SUICIDAL IDEATION [None]
  - SUICIDE ATTEMPT [None]
  - TACHYCARDIA [None]
  - TREMOR [None]
  - WEIGHT DECREASED [None]
